FAERS Safety Report 10691198 (Version 2)
Quarter: 2015Q1

REPORT INFORMATION
  Report Type: Report from Study
  Country: FR (occurrence: FR)
  Receive Date: 20150105
  Receipt Date: 20150107
  Transmission Date: 20150720
  Serious: Yes (Hospitalization)
  Sender: FDA-Public Use
  Company Number: FR-GILEAD-2014-0129234

PATIENT
  Age: 43 Year
  Sex: Male
  Weight: 65 kg

DRUGS (5)
  1. BLINDED EMTRICITABINE/TENOFOVIR DISOPROXIL FUMARATE [Suspect]
     Active Substance: EMTRICITABINE\TENOFOVIR DISOPROXIL
     Indication: PROPHYLAXIS AGAINST HIV INFECTION
     Dosage: UNK
     Route: 065
     Dates: start: 20141114
  2. PLACEBO [Suspect]
     Active Substance: UNSPECIFIED INGREDIENT
     Dosage: 1 DF, QD
     Route: 065
     Dates: start: 20141217, end: 20141217
  3. PLACEBO [Suspect]
     Active Substance: UNSPECIFIED INGREDIENT
     Indication: PROPHYLAXIS AGAINST HIV INFECTION
     Dosage: UNK
     Route: 065
     Dates: start: 20141114
  4. BLINDED EMTRICITABINE/TENOFOVIR DISOPROXIL FUMARATE [Suspect]
     Active Substance: EMTRICITABINE\TENOFOVIR DISOPROXIL
     Dosage: 1 DF, QD
     Route: 065
     Dates: start: 20141217, end: 20141217
  5. WYSTAMM [Concomitant]
     Indication: HYPERSENSITIVITY
     Dosage: UNK
     Dates: start: 20111201

REACTIONS (2)
  - Vascular purpura [Recovered/Resolved]
  - Cytomegalovirus test positive [Recovered/Resolved]

NARRATIVE: CASE EVENT DATE: 20141217
